FAERS Safety Report 11829857 (Version 1)
Quarter: 2015Q4

REPORT INFORMATION
  Report Type: Spontaneous
  Country: US (occurrence: US)
  Receive Date: 20151212
  Receipt Date: 20151212
  Transmission Date: 20160305
  Serious: No
  Sender: FDA-Public Use
  Company Number: US-BAUSCH-BL-2015-004198

PATIENT
  Sex: Female

DRUGS (1)
  1. TIMOLOL MALEATE GEL FORMING SOLUTION 0.5% [Suspect]
     Active Substance: TIMOLOL MALEATE
     Indication: PRODUCT USED FOR UNKNOWN INDICATION
     Route: 047

REACTIONS (3)
  - Superficial injury of eye [Recovering/Resolving]
  - Injury associated with device [None]
  - Product quality issue [None]
